FAERS Safety Report 15276377 (Version 1)
Quarter: 2018Q3

REPORT INFORMATION
  Report Type: Spontaneous
  Country: US (occurrence: US)
  Receive Date: 20180814
  Receipt Date: 20180814
  Transmission Date: 20181010
  Serious: No
  Sender: FDA-Public Use
  Company Number: US-MYLANLABS-2018M1060896

PATIENT
  Sex: Male
  Weight: 70 kg

DRUGS (4)
  1. MYCOPHENOLATE [Concomitant]
     Active Substance: MYCOPHENOLIC ACID
     Indication: PRODUCT USED FOR UNKNOWN INDICATION
     Dosage: UNK UNK,
  2. TACROLIMUS CAPSULES [Suspect]
     Active Substance: TACROLIMUS
     Indication: HEART TRANSPLANT
     Dosage: 2 DF, BID (2 IN THE MORNING AND 2 AT NIGHT)
     Route: 048
  3. TACROLIMUS CAPSULES [Suspect]
     Active Substance: TACROLIMUS
     Dosage: 1 MG IN MORNING AND ONE AND A HALF MG AT NIGHT
  4. TACROLIMUS CAPSULES [Suspect]
     Active Substance: TACROLIMUS
     Dosage: 1 DF, BID (1 IN THE MORNING AND 1 AT NIGHT)

REACTIONS (7)
  - Back disorder [Unknown]
  - Genital herpes [Not Recovered/Not Resolved]
  - Herpes virus infection [Not Recovered/Not Resolved]
  - Blister [Not Recovered/Not Resolved]
  - Oral herpes [Not Recovered/Not Resolved]
  - Fatigue [Not Recovered/Not Resolved]
  - Wrong dose [Recovered/Resolved]
